FAERS Safety Report 18054303 (Version 1)
Quarter: 2020Q3

REPORT INFORMATION
  Report Type: Spontaneous
  Country: US (occurrence: US)
  Receive Date: 20200721
  Receipt Date: 20200721
  Transmission Date: 20201103
  Serious: No
  Sender: FDA-Public Use
  Company Number: None

PATIENT
  Age: 45 Year
  Sex: Male
  Weight: 75 kg

DRUGS (1)
  1. PIPERACILLIN/TAZOBACTAM (PIPERACILLIN NA 4GM/TAZOBACTAM 0.5GM/VIL INJ) [Suspect]
     Active Substance: PIPERACILLIN SODIUM\TAZOBACTAM SODIUM
     Indication: CHOLECYSTITIS
     Route: 042
     Dates: start: 20200608, end: 20200620

REACTIONS (2)
  - Stevens-Johnson syndrome [None]
  - Toxic epidermal necrolysis [None]

NARRATIVE: CASE EVENT DATE: 20200708
